FAERS Safety Report 21369037 (Version 1)
Quarter: 2022Q3

REPORT INFORMATION
  Report Type: Spontaneous
  Country: BR (occurrence: BR)
  Receive Date: 20220923
  Receipt Date: 20220923
  Transmission Date: 20221027
  Serious: Yes (Hospitalization)
  Sender: FDA-Public Use
  Company Number: BR-NOVARTISPH-NVSC2022BR213837

PATIENT
  Age: 51 Year
  Sex: Female
  Weight: 51.5 kg

DRUGS (2)
  1. LETROZOLE [Suspect]
     Active Substance: LETROZOLE
     Indication: Ovarian cancer
     Dosage: 2.5 MG, QD
     Route: 048
     Dates: start: 20211005, end: 20220531
  2. PALBOCICLIB [Suspect]
     Active Substance: PALBOCICLIB
     Indication: Ovarian cancer
     Dosage: 125 MG, QD (D1-D21)
     Route: 048
     Dates: start: 20211005, end: 20220531

REACTIONS (5)
  - Vitreous detachment [Recovered/Resolved with Sequelae]
  - Septic pulmonary embolism [Unknown]
  - Raynaud^s phenomenon [Unknown]
  - Visual acuity reduced [Unknown]
  - Arthralgia [Unknown]

NARRATIVE: CASE EVENT DATE: 20211020
